FAERS Safety Report 8176748-2 (Version None)
Quarter: 2012Q1

REPORT INFORMATION
  Report Type: 
  Country: None (occurrence: None)
  Receive Date: 20120228
  Receipt Date: 20120220
  Transmission Date: 20120608
  Serious: Yes (Hospitalization)
  Sender: FDA-Public Use
  Company Number: 2012MA002444

PATIENT
  Age: 59 Year
  Sex: Male

DRUGS (2)
  1. DICLOFENAC SODIUM [Suspect]
     Indication: GOUTY ARTHRITIS
     Dosage: 75 MG; ;PO
     Route: 048
     Dates: end: 20110920
  2. FEBUXOSTAT (FEBUXOSTAT) [Suspect]
     Indication: GOUTY ARTHRITIS
     Dosage: 80 MG;QD;PO
     Route: 048
     Dates: start: 20110311, end: 20110920

REACTIONS (1)
  - ACUTE MYOCARDIAL INFARCTION [None]
